FAERS Safety Report 7642826-7 (Version None)
Quarter: 2011Q3

REPORT INFORMATION
  Report Type: 
  Country: None (occurrence: None)
  Receive Date: 20110728
  Receipt Date: 20110720
  Transmission Date: 20111222
  Serious: Yes (Hospitalization)
  Sender: FDA-Public Use
  Company Number: CA-BAXTER-2011BH023210

PATIENT
  Sex: Male

DRUGS (3)
  1. DIANEAL [Suspect]
     Route: 033
     Dates: start: 20091210, end: 20110601
  2. DIANEAL [Suspect]
     Indication: PERITONEAL DIALYSIS
     Route: 033
     Dates: start: 20110701
  3. DIANEAL [Suspect]
     Route: 033
     Dates: start: 20110601, end: 20110601

REACTIONS (3)
  - INCORRECT DOSE ADMINISTERED [None]
  - FLUID OVERLOAD [None]
  - SKIN ULCER [None]
